FAERS Safety Report 5531450-8 (Version None)
Quarter: 2007Q4

REPORT INFORMATION
  Report Type: 
  Country: None (occurrence: None)
  Receive Date: 20071128
  Receipt Date: 20071128
  Transmission Date: 20080405
  Serious: No
  Sender: FDA-Public Use
  Company Number: None

PATIENT
  Age: 30 Year
  Sex: Female
  Weight: 113.3993 kg

DRUGS (1)
  1. CHANTIX [Suspect]
     Indication: SMOKING CESSATION THERAPY
     Dosage: 1 TWICE A DAY PO
     Route: 048

REACTIONS (3)
  - ABNORMAL BEHAVIOUR [None]
  - FEELING ABNORMAL [None]
  - TREATMENT NONCOMPLIANCE [None]
